FAERS Safety Report 10869205 (Version 1)
Quarter: 2015Q1

REPORT INFORMATION
  Report Type: Report from Study
  Country: TR (occurrence: TR)
  Receive Date: 20150225
  Receipt Date: 20150225
  Transmission Date: 20150721
  Serious: Yes (Hospitalization)
  Sender: FDA-Public Use
  Company Number: TR-EMD SERONO-7315615

PATIENT
  Age: 40 Year
  Sex: Female
  Weight: 92 kg

DRUGS (2)
  1. BRUFEN                             /00109201/ [Suspect]
     Active Substance: IBUPROFEN
     Indication: ANALGESIC THERAPY
     Dates: start: 20120101
  2. REBIF [Suspect]
     Active Substance: INTERFERON BETA-1A
     Indication: MULTIPLE SCLEROSIS
     Dates: start: 20120101

REACTIONS (3)
  - Blood count abnormal [Unknown]
  - Vitamin B12 deficiency [Unknown]
  - Perineal cyst [Recovered/Resolved]

NARRATIVE: CASE EVENT DATE: 20140630
